FAERS Safety Report 6311568-2 (Version None)
Quarter: 2009Q3

REPORT INFORMATION
  Report Type: 
  Country: None (occurrence: None)
  Receive Date: 20090817
  Receipt Date: 20090803
  Transmission Date: 20100115
  Serious: Yes (Congenital Anomaly)
  Sender: FDA-Public Use
  Company Number: US-SOLVAY-00209004348

PATIENT
  Age: 0 Day
  Sex: Male

DRUGS (1)
  1. PROMETRIUM [Suspect]
     Indication: PROPHYLAXIS OF ABORTION
     Dosage: DAILY DOSE:  UNKNOWN
     Route: 065
     Dates: start: 20080201, end: 20080201

REACTIONS (1)
  - MICROCEPHALY [None]
